FAERS Safety Report 6135137-2 (Version None)
Quarter: 2009Q1

REPORT INFORMATION
  Report Type: 
  Country: None (occurrence: None)
  Receive Date: 20090327
  Receipt Date: 20090312
  Transmission Date: 20090719
  Serious: Yes (Hospitalization)
  Sender: FDA-Public Use
  Company Number: JP-MERCK-0903USA02674

PATIENT
  Age: 87 Year
  Sex: Female

DRUGS (8)
  1. FOSAMAX [Suspect]
     Indication: OSTEOPOROSIS
     Route: 048
     Dates: start: 20061016, end: 20090306
  2. BENET [Suspect]
     Indication: OSTEOPOROSIS
     Route: 048
     Dates: start: 20031213, end: 20061015
  3. NORVASC [Concomitant]
     Indication: HYPERTENSION
     Route: 048
  4. LANSOPRAZOLE [Concomitant]
     Indication: REFLUX OESOPHAGITIS
     Route: 048
  5. MYSLEE [Concomitant]
     Indication: INSOMNIA
     Route: 048
  6. DEPAS [Concomitant]
     Indication: INSOMNIA
     Route: 048
  7. ITOROL [Concomitant]
     Indication: ANGINA PECTORIS
     Route: 048
  8. PRORENAL [Concomitant]
     Indication: SPINAL COLUMN STENOSIS
     Route: 048

REACTIONS (1)
  - OSTEONECROSIS [None]
